FAERS Safety Report 5286838-X (Version None)
Quarter: 2007Q2

REPORT INFORMATION
  Report Type: 
  Country: None (occurrence: None)
  Receive Date: 20070404
  Receipt Date: 20070330
  Transmission Date: 20071010
  Serious: Yes (Hospitalization)
  Sender: FDA-Public Use
  Company Number: FR-BOEHRINGER INGELHEIM PHARMACEUTICALS, INC.-2007-FF-00421FF

PATIENT
  Age: 85 Year
  Sex: Female
  Weight: 71 kg

DRUGS (5)
  1. CATAPRES [Suspect]
     Indication: ESSENTIAL HYPERTENSION
     Route: 048
     Dates: end: 20061108
  2. ALDALIX [Suspect]
     Indication: ESSENTIAL HYPERTENSION
     Dosage: 50MG/ 20MG
     Route: 048
     Dates: end: 20061108
  3. NOCTAMIDE [Concomitant]
     Route: 048
  4. LOXEN [Concomitant]
     Indication: ESSENTIAL HYPERTENSION
     Route: 048
  5. XANAX [Concomitant]
     Route: 048
     Dates: end: 20061108

REACTIONS (3)
  - ORTHOSTATIC HYPOTENSION [None]
  - TREMOR [None]
  - VERTIGO [None]
